FAERS Safety Report 23662637 (Version 1)
Quarter: 2024Q1

REPORT INFORMATION
  Report Type: Other
  Country: CA (occurrence: CA)
  Receive Date: 20240322
  Receipt Date: 20240322
  Transmission Date: 20240409
  Serious: Yes (Other)
  Sender: FDA-Public Use
  Company Number: CA-PFIZER INC-202400068733

PATIENT
  Age: 5 Decade
  Sex: Male

DRUGS (1)
  1. METHOTREXATE SODIUM [Suspect]
     Active Substance: METHOTREXATE SODIUM
     Indication: Corneal epithelial downgrowth

REACTIONS (4)
  - Atrophy of globe [Unknown]
  - Infective keratitis [Unknown]
  - Off label use [Unknown]
  - Retinal pigment epitheliopathy [Unknown]
